APPROVED DRUG PRODUCT: VITAMIN A PALMITATE
Active Ingredient: VITAMIN A PALMITATE
Strength: EQ 50,000 UNITS BASE/ML
Dosage Form/Route: INJECTABLE;INJECTION
Application: A080819 | Product #001
Applicant: BEL MAR LABORATORIES INC
Approved: Approved Prior to Jan 1, 1982 | RLD: No | RS: No | Type: DISCN